FAERS Safety Report 4376255-9 (Version None)
Quarter: 2004Q2

REPORT INFORMATION
  Report Type: 
  Country: None (occurrence: None)
  Receive Date: 20040611
  Receipt Date: 20020516
  Transmission Date: 20050107
  Serious: Yes (Death, Hospitalization, Other)
  Sender: FDA-Public Use
  Company Number: US-MERCK-0205USA01985

PATIENT
  Age: 35 Year
  Sex: Male
  Weight: 205 kg

DRUGS (15)
  1. [THERAPY UNSPECIFIED] [Concomitant]
     Indication: DEPRESSION
     Route: 065
     Dates: end: 20011020
  2. TYLENOL [Concomitant]
     Route: 065
  3. MYLANTA + MYLANTA DS [Concomitant]
     Route: 065
  4. CELEBREX [Concomitant]
     Route: 065
  5. CATAPRES [Concomitant]
     Route: 065
     Dates: end: 20011020
  6. DYAZIDE [Concomitant]
     Route: 065
     Dates: end: 20011020
  7. MOTRIN [Concomitant]
     Route: 065
  8. ORUDIS [Concomitant]
     Route: 065
  9. ZESTRIL [Concomitant]
     Indication: HYPERTENSION
     Route: 065
  10. CYTOTEC [Concomitant]
     Route: 065
  11. NAPROXEN [Concomitant]
     Route: 065
  12. PROCARDIA [Concomitant]
     Route: 065
     Dates: end: 20011020
  13. ACTIFED [Concomitant]
     Route: 065
  14. VIOXX [Suspect]
     Indication: ARTHRITIS
     Route: 048
     Dates: end: 20011020
  15. VIOXX [Suspect]
     Route: 048

REACTIONS (11)
  - ABDOMINAL PAIN UPPER [None]
  - CHEST PAIN [None]
  - DEATH [None]
  - DYSPNOEA [None]
  - EPIGASTRIC DISCOMFORT [None]
  - INJURY [None]
  - MYOCARDIAL INFARCTION [None]
  - PCO2 DECREASED [None]
  - STOMACH DISCOMFORT [None]
  - VENTRICULAR HYPERTROPHY [None]
  - VOMITING [None]
